FAERS Safety Report 13804613 (Version 1)
Quarter: 2017Q3

REPORT INFORMATION
  Report Type: Spontaneous
  Country: US (occurrence: US)
  Receive Date: 20170728
  Receipt Date: 20170728
  Transmission Date: 20171127
  Serious: No
  Sender: FDA-Public Use
  Company Number: US-ABBVIE-17P-163-1927311-00

PATIENT
  Sex: Female
  Weight: 99.88 kg

DRUGS (2)
  1. SYNTHROID [Suspect]
     Active Substance: LEVOTHYROXINE SODIUM
     Route: 065
  2. SYNTHROID [Suspect]
     Active Substance: LEVOTHYROXINE SODIUM
     Indication: PRODUCT USED FOR UNKNOWN INDICATION
     Dosage: FOR YEARS, UNKNOWN DATES AROUND--2011
     Route: 065

REACTIONS (2)
  - Malabsorption [Unknown]
  - Blood thyroid stimulating hormone abnormal [Unknown]
